FAERS Safety Report 5021461-3 (Version None)
Quarter: 2006Q2

REPORT INFORMATION
  Report Type: 
  Country: None (occurrence: None)
  Receive Date: 20060605
  Receipt Date: 20060524
  Transmission Date: 20061013
  Serious: Yes (Hospitalization)
  Sender: FDA-Public Use
  Company Number: 163-20785-06050776

PATIENT
  Age: 31 Year
  Sex: Female

DRUGS (1)
  1. THALOMID [Suspect]
     Indication: MALIGNANT NEOPLASM OF UTERINE ADNEXA
     Dosage: 150 MG, DAILY, ORAL
     Route: 048
     Dates: start: 20010801, end: 20060501

REACTIONS (1)
  - GENERAL NUTRITION DISORDER [None]
